FAERS Safety Report 13870433 (Version 2)
Quarter: 2017Q3

REPORT INFORMATION
  Report Type: Spontaneous
  Country: CA (occurrence: CA)
  Receive Date: 20170815
  Receipt Date: 20170829
  Transmission Date: 20171127
  Serious: Yes (Other)
  Sender: FDA-Public Use
  Company Number: CA-IMPAX LABORATORIES, INC-2017-IPXL-02420

PATIENT
  Age: 30 Year
  Sex: Female

DRUGS (1)
  1. ADRENACLICK [Suspect]
     Active Substance: EPINEPHRINE
     Indication: PERINEAL INJURY
     Dosage: 1 ML OF EPINEPHRINE 1:1000
     Route: 065

REACTIONS (1)
  - Stress cardiomyopathy [Recovered/Resolved]
